FAERS Safety Report 10094927 (Version 1)
Quarter: 2014Q2

REPORT INFORMATION
  Report Type: Spontaneous
  Country: US (occurrence: None)
  Receive Date: 20140421
  Receipt Date: 20140421
  Transmission Date: 20141212
  Serious: Yes (Hospitalization)
  Sender: FDA-Public Use
  Company Number: None

PATIENT
  Age: 50 Year
  Sex: Male
  Weight: 135.5 kg

DRUGS (2)
  1. SIMEPRAVIR [Suspect]
     Route: 048
     Dates: start: 20140225
  2. SOFOABUVIR [Suspect]
     Route: 048
     Dates: start: 20140225

REACTIONS (7)
  - Mallory-Weiss syndrome [None]
  - Gastric disorder [None]
  - Gastric polyps [None]
  - Abdominal pain [None]
  - Gastrointestinal haemorrhage [None]
  - Haematemesis [None]
  - Abdominal pain upper [None]
